FAERS Safety Report 14759144 (Version 1)
Quarter: 2018Q2

REPORT INFORMATION
  Report Type: Report from Study
  Country: IT (occurrence: IT)
  Receive Date: 20180413
  Receipt Date: 20180413
  Transmission Date: 20180711
  Serious: Yes (Other)
  Sender: FDA-Public Use
  Company Number: IT-TEVA-2018-IT-879245

PATIENT
  Age: 88 Year
  Sex: Male

DRUGS (8)
  1. PANTOPAN 20 MG COMPRESSE GASTRORESISTENTI [Concomitant]
     Route: 048
  2. CARDIOASPIRIN 100 MG COMPRESSE GASTRORESISTENTI [Concomitant]
     Active Substance: ASPIRIN
     Indication: THROMBOSIS PROPHYLAXIS
     Route: 048
  3. OLANZAPINE TEVA 5 MG ORODISPERSIBLE TABLETS [Suspect]
     Active Substance: OLANZAPINE
     Indication: DEMENTIA
     Route: 048
  4. ZOPRANOL 30 MG COMPRESSE RIVESTITE CON FILM [Concomitant]
     Route: 048
  5. AVODART 0,5 MG CAPSULE MOLLI [Concomitant]
     Route: 048
  6. OMNIC 0,4 MG, CAPSULE RIGIDE A RILASCIO MODIFICATO [Concomitant]
     Route: 048
  7. VASEXTEN 10 MG CAPSULE A RILASCIO MODIFICATO [Concomitant]
     Route: 048
  8. STILNOX 10 MG COMPRESSE RIVESTITE CON FILM [Concomitant]
     Active Substance: ZOLPIDEM TARTRATE
     Route: 048

REACTIONS (3)
  - Dementia [Unknown]
  - Drug ineffective [Unknown]
  - Psychotic disorder [Unknown]
